FAERS Safety Report 4398075-1 (Version None)
Quarter: 2004Q3

REPORT INFORMATION
  Report Type: 
  Country: None (occurrence: None)
  Receive Date: 20040714
  Receipt Date: 20040714
  Transmission Date: 20050211
  Serious: Yes (Hospitalization, Other)
  Sender: FDA-Public Use
  Company Number: None

PATIENT
  Age: 43 Year
  Sex: Female
  Weight: 58.9676 kg

DRUGS (4)
  1. PAROXETINE HCL [Suspect]
     Indication: ANXIETY
     Dosage: 3/4 TSP DAILY ORAL
     Route: 048
     Dates: start: 20040221, end: 20040504
  2. PAROXETINE HCL [Suspect]
     Indication: STRESS SYMPTOMS
     Dosage: 3/4 TSP DAILY ORAL
     Route: 048
     Dates: start: 20040221, end: 20040504
  3. NEXIUM [Concomitant]
  4. MOBIC [Concomitant]

REACTIONS (11)
  - ANXIETY [None]
  - BACK PAIN [None]
  - CHEST PAIN [None]
  - CONVULSION [None]
  - DYSPNOEA [None]
  - GASTROOESOPHAGEAL REFLUX DISEASE [None]
  - HYPERHIDROSIS [None]
  - INSOMNIA [None]
  - MENSTRUATION IRREGULAR [None]
  - PAIN IN EXTREMITY [None]
  - PALPITATIONS [None]
